FAERS Safety Report 22068358 (Version 2)
Quarter: 2023Q2

REPORT INFORMATION
  Report Type: Report from Study
  Country: US (occurrence: US)
  Receive Date: 20230307
  Receipt Date: 20230404
  Transmission Date: 20230722
  Serious: Yes (Other)
  Sender: FDA-Public Use
  Company Number: US-ABBVIE-4329529

PATIENT
  Age: 72 Year
  Sex: Female

DRUGS (2)
  1. HUMIRA [Suspect]
     Active Substance: ADALIMUMAB
     Indication: Colitis ulcerative
     Dosage: FORM STRENGTH: 40 MILLIGRAM, CESSATION DATE MAR 2020
     Route: 058
     Dates: start: 20200319
  2. HUMIRA [Suspect]
     Active Substance: ADALIMUMAB
     Dosage: FORM STRENGTH: 40 MILLIGRAM, ONSET WAS MAR 2020
     Route: 058
     Dates: end: 20200329

REACTIONS (8)
  - Blindness unilateral [Unknown]
  - Ankylosing spondylitis [Not Recovered/Not Resolved]
  - Eye disorder [Unknown]
  - Ankylosing spondylitis [Unknown]
  - Colitis ulcerative [Not Recovered/Not Resolved]
  - Chills [Unknown]
  - Temperature regulation disorder [Unknown]
  - Headache [Unknown]

NARRATIVE: CASE EVENT DATE: 20220903
